FAERS Safety Report 8131659-3 (Version None)
Quarter: 2012Q1

REPORT INFORMATION
  Report Type: 
  Country: None (occurrence: None)
  Receive Date: 20120213
  Receipt Date: 20120210
  Transmission Date: 20120608
  Serious: No
  Sender: FDA-Public Use
  Company Number: US-TEVA-320783USA

PATIENT
  Sex: Male

DRUGS (1)
  1. PROAIR HFA [Suspect]
     Dosage: 270 MICROGRAM;
     Route: 055

REACTIONS (3)
  - CHOKING [None]
  - SPUTUM DISCOLOURED [None]
  - COUGH [None]
